FAERS Safety Report 20563224 (Version 1)
Quarter: 2022Q1

REPORT INFORMATION
  Report Type: Spontaneous
  Country: IN (occurrence: IN)
  Receive Date: 20220308
  Receipt Date: 20220308
  Transmission Date: 20220424
  Serious: Yes (Other)
  Sender: FDA-Public Use
  Company Number: IN-SUN PHARMACEUTICAL INDUSTRIES LTD-2022R1-327948

PATIENT
  Age: 37 Year
  Sex: Female

DRUGS (4)
  1. METHOTREXATE [Suspect]
     Active Substance: METHOTREXATE
     Indication: Spinal osteoarthritis
     Route: 065
  2. SULFASALAZINE [Suspect]
     Active Substance: SULFASALAZINE
     Indication: Spinal osteoarthritis
     Dosage: 500 MILLIGRAM, QD
     Route: 065
  3. SULFASALAZINE [Suspect]
     Active Substance: SULFASALAZINE
     Dosage: , 500 MILLIGRAM, BID,
     Route: 065
  4. SULFASALAZINE [Suspect]
     Active Substance: SULFASALAZINE
     Dosage: 1000 MILLIGRAM, QD AT NIGHT
     Route: 065

REACTIONS (2)
  - Drug reaction with eosinophilia and systemic symptoms [Unknown]
  - Pneumonitis [Unknown]
